FAERS Safety Report 9269701 (Version 1)
Quarter: 2013Q2

REPORT INFORMATION
  Report Type: Spontaneous
  Country: US (occurrence: US)
  Receive Date: 20130503
  Receipt Date: 20130503
  Transmission Date: 20140414
  Serious: Yes (Other)
  Sender: FDA-Public Use
  Company Number: US-BAYER-2013-053227

PATIENT
  Age: 20 Year
  Sex: Female

DRUGS (4)
  1. YAZ [Suspect]
  2. YASMIN [Suspect]
     Indication: DYSMENORRHOEA
  3. OCELLA [Suspect]
  4. ASA [Concomitant]

REACTIONS (1)
  - Deep vein thrombosis [None]
